FAERS Safety Report 8504697-6 (Version None)
Quarter: 2012Q3

REPORT INFORMATION
  Report Type: 
  Country: None (occurrence: None)
  Receive Date: 20120711
  Receipt Date: 20120705
  Transmission Date: 20120928
  Serious: Yes (Hospitalization)
  Sender: FDA-Public Use
  Company Number: CA-ROCHE-1063282

PATIENT
  Sex: Male
  Weight: 87 kg

DRUGS (7)
  1. PLACEBO [Suspect]
     Indication: RHEUMATOID ARTHRITIS
     Dosage: DATE OF LAST DOSE PRIOR TO SAE:09/FEB/2012
     Route: 048
     Dates: start: 20100415
  2. PLACEBO [Suspect]
     Dates: start: 20120412
  3. FOLIC ACID [Concomitant]
     Dates: start: 20120412
  4. ASPIRIN [Concomitant]
     Dates: start: 20050101, end: 20120423
  5. ACTEMRA [Suspect]
     Indication: RHEUMATOID ARTHRITIS
     Dosage: DATE OF LAST DOSE PRIOR TO SAE:16/FEB/2012
     Route: 042
     Dates: start: 20100415
  6. DICLOFENAC [Concomitant]
     Dates: start: 20100325, end: 20120423
  7. LIPITOR [Concomitant]
     Dates: start: 20110303

REACTIONS (2)
  - PLEURAL EFFUSION [None]
  - LOBAR PNEUMONIA [None]
